FAERS Safety Report 8500418-1 (Version None)
Quarter: 2012Q3

REPORT INFORMATION
  Report Type: 
  Country: None (occurrence: None)
  Receive Date: 20120710
  Receipt Date: 20120703
  Transmission Date: 20120928
  Serious: Yes (Hospitalization)
  Sender: FDA-Public Use
  Company Number: US-GLAXOSMITHKLINE-A0868260A

PATIENT
  Age: 62 Year
  Sex: Male
  Weight: 123.6 kg

DRUGS (4)
  1. LIPITOR [Concomitant]
  2. AVANDIA [Suspect]
     Indication: DIABETES MELLITUS
     Dosage: 8MG PER DAY
     Route: 048
     Dates: start: 20000518, end: 20090201
  3. INSULIN [Concomitant]
  4. HYZAAR [Concomitant]

REACTIONS (5)
  - CARDIAC FAILURE CONGESTIVE [None]
  - CORONARY ARTERY DISEASE [None]
  - MITRAL VALVE PROLAPSE [None]
  - ATRIAL FIBRILLATION [None]
  - ANAEMIA [None]
